FAERS Safety Report 7061716-4 (Version None)
Quarter: 2010Q4

REPORT INFORMATION
  Report Type: 
  Country: None (occurrence: None)
  Receive Date: 20101026
  Receipt Date: 20101018
  Transmission Date: 20110411
  Serious: Yes (Death, Hospitalization)
  Sender: FDA-Public Use
  Company Number: JP-GENZYME-THYM-1001403

PATIENT
  Sex: Male
  Weight: 50 kg

DRUGS (9)
  1. THYMOGLOBULIN [Suspect]
     Indication: MYELODYSPLASTIC SYNDROME
     Dosage: 175 MG, QD
     Route: 042
     Dates: start: 20090706, end: 20090710
  2. CYCLOSPORINE [Concomitant]
     Indication: APLASTIC ANAEMIA
     Dosage: UNK
     Dates: start: 20090706, end: 20090914
  3. CYCLOSPORINE [Concomitant]
     Indication: MYELODYSPLASTIC SYNDROME
  4. OMEPRAZOLE [Concomitant]
     Indication: PROPHYLAXIS AGAINST GASTROINTESTINAL ULCER
     Dosage: UNK
     Dates: start: 20090706, end: 20090914
  5. VALACYCLOVIR [Concomitant]
     Indication: ANTIVIRAL PROPHYLAXIS
     Dosage: UNK
     Dates: start: 20090706, end: 20090723
  6. NIFEDIPINE [Concomitant]
     Indication: SECONDARY HYPERTENSION
     Dosage: UNK
     Dates: start: 20090710, end: 20090806
  7. FILGRASTIM [Concomitant]
     Indication: PROPHYLAXIS
     Dosage: UNK
     Dates: start: 20090706, end: 20090713
  8. METHYLPREDNISOLONE SODIUM SUCCINATE [Concomitant]
     Indication: PREMEDICATION
     Dosage: UNK
     Dates: start: 20090706, end: 20090729
  9. PREDNISOLONE [Concomitant]
     Indication: PREMEDICATION
     Dosage: UNK
     Dates: start: 20090730, end: 20090914

REACTIONS (6)
  - DISEASE PROGRESSION [None]
  - GASTROINTESTINAL HAEMORRHAGE [None]
  - PNEUMOCYSTIS JIROVECI PNEUMONIA [None]
  - PNEUMONIA [None]
  - PNEUMONIA CYTOMEGALOVIRAL [None]
  - PNEUMONIA HERPES VIRAL [None]
